FAERS Safety Report 14914099 (Version 1)
Quarter: 2018Q2

REPORT INFORMATION
  Report Type: Spontaneous
  Country: RU (occurrence: RU)
  Receive Date: 20180518
  Receipt Date: 20180518
  Transmission Date: 20180711
  Serious: Yes (Other)
  Sender: FDA-Public Use
  Company Number: RU-JNJFOC-20180522176

PATIENT
  Age: 47 Year
  Sex: Female

DRUGS (6)
  1. CLOZAPINUM [Concomitant]
     Route: 065
     Dates: start: 201712, end: 201712
  2. AMIXIN [Concomitant]
     Active Substance: TILORONE
     Route: 065
  3. VERMOX [Suspect]
     Active Substance: MEBENDAZOLE
     Indication: STRONGYLOIDIASIS
     Route: 048
     Dates: start: 201712, end: 201801
  4. VERMOX [Suspect]
     Active Substance: MEBENDAZOLE
     Indication: HEPATIC ECHINOCOCCIASIS
     Route: 048
     Dates: start: 201712, end: 201801
  5. VERMOX [Suspect]
     Active Substance: MEBENDAZOLE
     Indication: TAENIASIS
     Route: 048
     Dates: start: 201712, end: 201801
  6. FOLIC ACID. [Concomitant]
     Active Substance: FOLIC ACID
     Route: 065

REACTIONS (3)
  - Aplastic anaemia [Recovering/Resolving]
  - Tachycardia [Recovering/Resolving]
  - Asthenia [Recovering/Resolving]
